FAERS Safety Report 8267722-6 (Version None)
Quarter: 2012Q2

REPORT INFORMATION
  Report Type: 
  Country: None (occurrence: None)
  Receive Date: 20120405
  Receipt Date: 20120405
  Transmission Date: 20120825
  Serious: No
  Sender: FDA-Public Use
  Company Number: None

PATIENT
  Age: 74 Year
  Sex: Male
  Weight: 76.9 kg

DRUGS (1)
  1. LIVALO [Suspect]
     Indication: HYPERLIPIDAEMIA
     Dosage: EVERY DAY PO
     Route: 048
     Dates: end: 20120119

REACTIONS (3)
  - MYALGIA [None]
  - MYOSITIS [None]
  - BLOOD CREATINE PHOSPHOKINASE INCREASED [None]
